FAERS Safety Report 7081452-8 (Version None)
Quarter: 2010Q4

REPORT INFORMATION
  Report Type: 
  Country: None (occurrence: None)
  Receive Date: 20101025
  Receipt Date: 20101015
  Transmission Date: 20110411
  Serious: Yes (Death)
  Sender: FDA-Public Use
  Company Number: MSTR-NO-1010S-0347

PATIENT
  Sex: Male

DRUGS (1)
  1. METASTRON [Suspect]
     Indication: METASTATIC PAIN
     Dosage: 98.4 MBQ, SINGLE DOSE, I.V.
     Route: 042
     Dates: start: 20100729, end: 20100729

REACTIONS (1)
  - DEATH [None]
